FAERS Safety Report 5933998-0 (Version None)
Quarter: 2008Q4

REPORT INFORMATION
  Report Type: 
  Country: None (occurrence: None)
  Receive Date: 20081029
  Receipt Date: 20081020
  Transmission Date: 20090506
  Serious: Yes (Hospitalization)
  Sender: FDA-Public Use
  Company Number: US-AVENTIS-200718321US

PATIENT
  Sex: Female

DRUGS (11)
  1. KETEK [Suspect]
     Indication: SINUSITIS
     Route: 048
     Dates: start: 20050825, end: 20050825
  2. KETEK [Suspect]
     Route: 048
     Dates: start: 20051013, end: 20051013
  3. KETEK [Suspect]
     Route: 048
     Dates: start: 20051115, end: 20051118
  4. KETEK [Suspect]
     Indication: BRONCHITIS
     Route: 048
     Dates: start: 20050825, end: 20050825
  5. KETEK [Suspect]
     Route: 048
     Dates: start: 20051013, end: 20051013
  6. KETEK [Suspect]
     Route: 048
     Dates: start: 20051115, end: 20051118
  7. KETEK [Suspect]
     Route: 048
     Dates: start: 20050825, end: 20050825
  8. KETEK [Suspect]
     Route: 048
     Dates: start: 20051013, end: 20051013
  9. KETEK [Suspect]
     Route: 048
     Dates: start: 20051115, end: 20051118
  10. KEFLEX [Suspect]
     Indication: BRONCHITIS
     Route: 048
     Dates: start: 20051109
  11. PREDNISONE TAB [Concomitant]

REACTIONS (20)
  - ANAEMIA [None]
  - APNOEA [None]
  - BLINDNESS TRANSIENT [None]
  - CHEST PAIN [None]
  - EXTRASYSTOLES [None]
  - FANCONI SYNDROME [None]
  - FLUID RETENTION [None]
  - HYPOKALAEMIA [None]
  - HYPOPHOSPHATAEMIA [None]
  - METABOLIC ACIDOSIS [None]
  - MICROCYTOSIS [None]
  - MUSCULAR WEAKNESS [None]
  - PAIN IN EXTREMITY [None]
  - PARAESTHESIA [None]
  - PARALYSIS [None]
  - PRESYNCOPE [None]
  - RASH ERYTHEMATOUS [None]
  - RENAL TUBULAR ACIDOSIS [None]
  - RESPIRATORY FAILURE [None]
  - URINE PHOSPHATE INCREASED [None]
